FAERS Safety Report 4382175-6 (Version None)
Quarter: 2004Q2

REPORT INFORMATION
  Report Type: 
  Country: None (occurrence: None)
  Receive Date: 20040615
  Receipt Date: 20040602
  Transmission Date: 20050107
  Serious: Yes (Hospitalization)
  Sender: FDA-Public Use
  Company Number: 2004036973

PATIENT
  Sex: Male
  Weight: 97.5234 kg

DRUGS (4)
  1. GEODON [Suspect]
     Indication: SCHIZOPHRENIA
     Dosage: 1 IN 1 D, ORAL
     Route: 048
     Dates: start: 20010701
  2. QUETIAPINE FUMARATE (QUETIAPINE FUMARATE) [Suspect]
     Indication: SCHIZOPHRENIA
     Dosage: 200 MG, ORAL
     Route: 048
     Dates: end: 20030101
  3. GABAPENTIN [Concomitant]
  4. PARACETAMOL (PARACETAMOL) [Concomitant]

REACTIONS (12)
  - ACNE [None]
  - CONDITION AGGRAVATED [None]
  - CONFUSIONAL STATE [None]
  - CRYING [None]
  - CYST [None]
  - DRY MOUTH [None]
  - HAEMORRHAGE [None]
  - HEADACHE [None]
  - MUSCLE TWITCHING [None]
  - NERVOUSNESS [None]
  - SCHIZOPHRENIA [None]
  - WEIGHT INCREASED [None]
